FAERS Safety Report 4344979-5 (Version None)
Quarter: 2004Q2

REPORT INFORMATION
  Report Type: 
  Country: None (occurrence: None)
  Receive Date: 20040421
  Receipt Date: 20040421
  Transmission Date: 20050107
  Serious: Yes (Hospitalization)
  Sender: FDA-Public Use
  Company Number: None

PATIENT
  Age: 59 Year
  Sex: Female
  Weight: 66.6788 kg

DRUGS (1)
  1. LIPITOR [Suspect]
     Indication: BLOOD CHOLESTEROL
     Dosage: 20 MG 1 PER DAY
     Dates: start: 20030701, end: 20031101

REACTIONS (5)
  - ASTHENIA [None]
  - FATIGUE [None]
  - INFLUENZA LIKE ILLNESS [None]
  - PAIN IN EXTREMITY [None]
  - WEIGHT DECREASED [None]
